FAERS Safety Report 9476442 (Version 1)
Quarter: 2013Q3

REPORT INFORMATION
  Report Type: Spontaneous
  Country: CN (occurrence: CN)
  Receive Date: 20130826
  Receipt Date: 20130826
  Transmission Date: 20140515
  Serious: Yes (Other)
  Sender: FDA-Public Use
  Company Number: CN-PFIZER INC-2013238465

PATIENT
  Age: 58 Year
  Sex: Male

DRUGS (1)
  1. ADRIAMYCIN [Suspect]
     Indication: ADENOSQUAMOUS CELL LUNG CANCER
     Dosage: 60 MG, UNK
     Route: 042

REACTIONS (1)
  - Anaphylactic shock [Recovered/Resolved]
